FAERS Safety Report 5258045-8 (Version None)
Quarter: 2007Q1

REPORT INFORMATION
  Report Type: 
  Country: None (occurrence: None)
  Receive Date: 20070302
  Receipt Date: 20070221
  Transmission Date: 20070707
  Serious: Yes (Hospitalization)
  Sender: FDA-Public Use
  Company Number: 20070010USST

PATIENT
  Age: 38 Year
  Sex: Male
  Weight: 66 kg

DRUGS (10)
  1. PROCARBAZINE CAPSULES [Suspect]
  2. EPREX [Suspect]
     Indication: ANAEMIA OF MALIGNANT DISEASE
     Dosage: SC
     Route: 058
     Dates: start: 20061104
  3. CYCLOPHOSPHAMIDE [Suspect]
  4. DOXORUBICIN HCL [Suspect]
  5. ETOPOSIDE [Suspect]
  6. VINCRISTINE [Suspect]
  7. BLEOMYCIN [Suspect]
  8. PREDNISONE [Suspect]
  9. FERROGLYCINE SUKFATE COMPLEX [Concomitant]
  10. ESOMEPRAZOLE MAGNESIUM [Concomitant]

REACTIONS (2)
  - HERPES ZOSTER [None]
  - PULMONARY MYCOSIS [None]
